FAERS Safety Report 8349600-7 (Version None)
Quarter: 2012Q2

REPORT INFORMATION
  Report Type: 
  Country: None (occurrence: None)
  Receive Date: 20120510
  Receipt Date: 20120502
  Transmission Date: 20120825
  Serious: Yes (Hospitalization, Disabling, Other)
  Sender: FDA-Public Use
  Company Number: US-BAYER-2011-122498

PATIENT
  Age: 41 Year
  Sex: Female
  Weight: 79.365 kg

DRUGS (2)
  1. YAZ [Suspect]
     Indication: CONTRACEPTION
     Dosage: UNK
     Dates: start: 20090101
  2. MOTRIN [Concomitant]
     Dosage: UNK
     Dates: start: 20090101

REACTIONS (8)
  - HEMIPARESIS [None]
  - PAIN [None]
  - ANHEDONIA [None]
  - GENERAL PHYSICAL HEALTH DETERIORATION [None]
  - EMOTIONAL DISTRESS [None]
  - EMBOLIC STROKE [None]
  - CEREBROVASCULAR ACCIDENT [None]
  - ANXIETY [None]
